FAERS Safety Report 7571787-4 (Version None)
Quarter: 2011Q2

REPORT INFORMATION
  Report Type: 
  Country: None (occurrence: None)
  Receive Date: 20110624
  Receipt Date: 20110608
  Transmission Date: 20111010
  Serious: No
  Sender: FDA-Public Use
  Company Number: US-B.I. PHARMACEUTICALS,INC./RIDGEFIELD-2011-BP-13795BP

PATIENT
  Age: 64 Year
  Sex: Male
  Weight: 100.24 kg

DRUGS (3)
  1. COUMADIN [Concomitant]
  2. PRADAXA [Suspect]
     Indication: ATRIAL FIBRILLATION
     Dosage: 300 MG
     Dates: start: 20110418, end: 20110503
  3. COUMADIN [Concomitant]

REACTIONS (2)
  - ENERGY INCREASED [None]
  - HALLUCINATION, AUDITORY [None]
